FAERS Safety Report 5511557-1 (Version None)
Quarter: 2007Q4

REPORT INFORMATION
  Report Type: 
  Country: None (occurrence: None)
  Receive Date: 20071109
  Receipt Date: 20071029
  Transmission Date: 20080405
  Serious: Yes (Death, Life-Threatening, Hospitalization)
  Sender: FDA-Public Use
  Company Number: GB-JNJFOC-20050903231

PATIENT
  Age: 79 Year
  Sex: Female

DRUGS (5)
  1. TRAMADOL HCL [Suspect]
     Indication: SCIATICA
  2. AMITRIPTYLINE HCL [Interacting]
     Indication: DEPRESSION
     Route: 048
  3. ROFECOXIB [Concomitant]
     Indication: BACK PAIN
     Route: 065
  4. MORPHINE SULFATE [Concomitant]
     Indication: BACK PAIN
     Route: 065
  5. COPROXAMOL [Concomitant]
     Indication: BACK PAIN
     Route: 065

REACTIONS (14)
  - BRADYCARDIA [None]
  - CIRCULATORY COLLAPSE [None]
  - COMA [None]
  - CONFUSIONAL STATE [None]
  - CONVULSION [None]
  - DRUG INTERACTION [None]
  - HALLUCINATION [None]
  - HYPERHIDROSIS [None]
  - HYPOTENSION [None]
  - METABOLIC ACIDOSIS [None]
  - MUSCLE RIGIDITY [None]
  - PYREXIA [None]
  - SEROTONIN SYNDROME [None]
  - TACHYCARDIA [None]
